FAERS Safety Report 10554589 (Version 4)
Quarter: 2014Q4

REPORT INFORMATION
  Report Type: Report from Study
  Country: IT (occurrence: IT)
  Receive Date: 20141030
  Receipt Date: 20141205
  Transmission Date: 20150529
  Serious: Yes (Hospitalization)
  Sender: FDA-Public Use
  Company Number: IT-009507513-1409ITA015501

PATIENT
  Age: 51 Year
  Sex: Male
  Weight: 73 kg

DRUGS (9)
  1. PEMBROLIZUMAB. [Suspect]
     Active Substance: PEMBROLIZUMAB
     Indication: NEOPLASM MALIGNANT
     Dosage: 10 MG/KG, QOW
     Route: 042
     Dates: start: 20140819, end: 20140819
  2. EUTIROX [Concomitant]
     Active Substance: LEVOTHYROXINE SODIUM
     Indication: THYROID HORMONE REPLACEMENT THERAPY
     Dosage: UNK, FREQUENCY: OTHER, FORMULATION : PILL, DAILY DOSE : 125 MCG
     Route: 048
     Dates: start: 20140731
  3. ASPIRIN. [Concomitant]
     Active Substance: ASPIRIN
     Indication: THROMBOSIS PROPHYLAXIS
     Dosage: 100 MG, QD, FORMULATION : PILL
     Route: 048
     Dates: start: 20140731, end: 20140907
  4. OMEPRAZOLE. [Concomitant]
     Active Substance: OMEPRAZOLE
     Indication: PROPHYLAXIS
     Dosage: 20 MG, QD, FORMULATION: PILL
     Route: 048
     Dates: start: 20140731
  5. FLECAINIDE ACETATE. [Concomitant]
     Active Substance: FLECAINIDE ACETATE
     Indication: ARRHYTHMIA PROPHYLAXIS
     Dosage: 100 MG, BID, FORMULATION: PILL
     Route: 048
     Dates: start: 20140624
  6. PEMBROLIZUMAB. [Suspect]
     Active Substance: PEMBROLIZUMAB
     Indication: SALIVARY GLAND CANCER
     Dosage: 10 MG/KG, QOW
     Route: 042
     Dates: start: 20140902, end: 20140902
  7. CALCITRIOL. [Concomitant]
     Active Substance: CALCITRIOL
     Indication: PARATHYROIDECTOMY
     Dosage: 0.5 MICROGRAM, BID, FORMULATION: PILL
     Route: 048
     Dates: start: 20140731
  8. CALCIUM CARBONATE. [Concomitant]
     Active Substance: CALCIUM CARBONATE
     Indication: HYPOCALCAEMIA
     Dosage: 3125 MG, BID
     Route: 048
     Dates: start: 20140820, end: 20141003
  9. EUTIROX [Concomitant]
     Active Substance: LEVOTHYROXINE SODIUM
     Indication: THYROID HORMONE REPLACEMENT THERAPY
     Dosage: UNK, FREQUENCY : OTHER, FORMULATION: PILL, DAILY DOSE:  150 MCG
     Route: 048
     Dates: start: 20140731

REACTIONS (1)
  - Hepatitis [Recovered/Resolved]

NARRATIVE: CASE EVENT DATE: 20140916
